FAERS Safety Report 20635520 (Version 1)
Quarter: 2022Q1

REPORT INFORMATION
  Report Type: Spontaneous
  Country: US (occurrence: None)
  Receive Date: 20220324
  Receipt Date: 20220324
  Transmission Date: 20220424
  Serious: No
  Sender: FDA-Public Use
  Company Number: None

PATIENT
  Age: 34 Year
  Sex: Female

DRUGS (1)
  1. HUMIRA [Suspect]
     Active Substance: ADALIMUMAB
     Indication: Psoriasis
     Route: 058
     Dates: start: 202112, end: 202203

REACTIONS (4)
  - Psoriasis [None]
  - Psoriasis [None]
  - Alopecia [None]
  - Therapy cessation [None]

NARRATIVE: CASE EVENT DATE: 20220105
